FAERS Safety Report 8337981-X (Version None)
Quarter: 2012Q2

REPORT INFORMATION
  Report Type: 
  Country: None (occurrence: None)
  Receive Date: 20120504
  Receipt Date: 20120426
  Transmission Date: 20120825
  Serious: Yes (Hospitalization)
  Sender: FDA-Public Use
  Company Number: US-JNJFOC-20110901944

PATIENT
  Sex: Female
  Weight: 77.9 kg

DRUGS (11)
  1. REMICADE [Suspect]
     Route: 042
     Dates: start: 20060424, end: 20090507
  2. TACLONEX [Concomitant]
  3. METHOTREXATE [Suspect]
     Indication: PSORIASIS
     Dates: start: 20100101
  4. PROPRANOLOL [Concomitant]
     Indication: BLOOD PRESSURE
     Route: 048
  5. LOVASTATIN [Concomitant]
  6. ENALAPRIL MALEATE [Concomitant]
     Route: 048
  7. ROPINIROLE [Concomitant]
     Route: 048
  8. PREMARIN [Concomitant]
  9. FOLIC ACID [Concomitant]
  10. REMICADE [Suspect]
     Indication: PSORIASIS
     Route: 042
     Dates: start: 20091027
  11. OMEPRAZOLE [Concomitant]
     Route: 048

REACTIONS (2)
  - CYTOMEGALOVIRUS INFECTION [None]
  - HEPATIC ENZYME INCREASED [None]
